FAERS Safety Report 6339907-7 (Version None)
Quarter: 2009Q3

REPORT INFORMATION
  Report Type: 
  Country: None (occurrence: None)
  Receive Date: 20090903
  Receipt Date: 20090826
  Transmission Date: 20100115
  Serious: Yes (Hospitalization)
  Sender: FDA-Public Use
  Company Number: AR-TEVA-204855ISR

PATIENT
  Sex: Female

DRUGS (4)
  1. METHOTREXATE [Suspect]
     Indication: RHEUMATOID ARTHRITIS
     Dates: start: 20070808, end: 20090726
  2. ABATACEPT [Suspect]
     Indication: RHEUMATOID ARTHRITIS
     Route: 058
     Dates: start: 20090413
  3. PREDNISONE [Concomitant]
     Dates: start: 20080801, end: 20090726
  4. MELOXICAM [Concomitant]
     Dates: start: 20070808, end: 20090726

REACTIONS (2)
  - PYREXIA [None]
  - SALPINGITIS [None]
